FAERS Safety Report 8011987-2 (Version None)
Quarter: 2011Q4

REPORT INFORMATION
  Report Type: 
  Country: None (occurrence: None)
  Receive Date: 20111228
  Receipt Date: 20111216
  Transmission Date: 20120403
  Serious: Yes (Death, Hospitalization)
  Sender: FDA-Public Use
  Company Number: GB-GLAXOSMITHKLINE-B0475641A

PATIENT
  Age: 80 Year
  Sex: Female

DRUGS (3)
  1. SIMVASTATIN [Concomitant]
  2. AVANDIA [Suspect]
     Indication: TYPE 2 DIABETES MELLITUS
     Dosage: 4MG PER DAY
     Route: 048
     Dates: start: 20000925, end: 20060401
  3. BETA BLOCKERS [Concomitant]

REACTIONS (22)
  - ASCITES [None]
  - ULCER [None]
  - DEATH [None]
  - OEDEMA [None]
  - LIPIDS INCREASED [None]
  - EYE HAEMORRHAGE [None]
  - EYE DISORDER [None]
  - HAEMOGLOBIN DECREASED [None]
  - DIABETIC RETINOPATHY [None]
  - EYE OEDEMA [None]
  - NEUROPATHY PERIPHERAL [None]
  - BUNDLE BRANCH BLOCK LEFT [None]
  - HYPERTENSION [None]
  - OEDEMA PERIPHERAL [None]
  - RENAL DISORDER [None]
  - CARDIAC FAILURE [None]
  - LEFT VENTRICULAR FAILURE [None]
  - SEPSIS [None]
  - CATARACT OPERATION [None]
  - MYOCARDIAL INFARCTION [None]
  - CARDIAC FAILURE CONGESTIVE [None]
  - STAPHYLOCOCCAL INFECTION [None]
